FAERS Safety Report 17627214 (Version 1)
Quarter: 2020Q2

REPORT INFORMATION
  Report Type: Spontaneous
  Country: US (occurrence: US)
  Receive Date: 20200405
  Receipt Date: 20200405
  Transmission Date: 20200713
  Serious: No
  Sender: FDA-Public Use
  Company Number: US-ZYDUS-040347

PATIENT
  Age: 59 Year
  Sex: Female

DRUGS (1)
  1. ATENOLOL. [Suspect]
     Active Substance: ATENOLOL
     Indication: HYPERTENSION
     Route: 048
     Dates: start: 20190719, end: 201908

REACTIONS (6)
  - Nausea [Unknown]
  - Dysgeusia [Unknown]
  - Salivary hypersecretion [Unknown]
  - Hypoaesthesia oral [Unknown]
  - Paraesthesia oral [Unknown]
  - Headache [Unknown]

NARRATIVE: CASE EVENT DATE: 201908
